FAERS Safety Report 8865665 (Version 1)
Quarter: 2012Q4

REPORT INFORMATION
  Report Type: 
  Country: US (occurrence: US)
  Receive Date: 20121024
  Receipt Date: 20121024
  Transmission Date: 20130627
  Serious: No
  Sender: FDA-Public Use
  Company Number: US-AMGEN-USASP2012004310

PATIENT
  Sex: Female

DRUGS (14)
  1. ENBREL [Suspect]
     Indication: PRODUCT USED FOR UNKNOWN INDICATION
     Dosage: 25 mg, 2 times/wk
  2. CALTRATE                           /00751519/ [Concomitant]
     Dosage: 600 mg, UNK
  3. MULTIVITAMIN                       /00097801/ [Concomitant]
  4. LORTAB                             /00607101/ [Concomitant]
  5. YEAST [Concomitant]
  6. VITAMIN D3 [Concomitant]
  7. VITAMIN C                          /00008001/ [Concomitant]
     Dosage: 500 mg, UNK
  8. NASONEX [Concomitant]
  9. SYNTHROID [Concomitant]
     Dosage: 25 mug, UNK
  10. JANUVIA [Concomitant]
     Dosage: 25 mg, UNK
  11. PREDNISONE [Concomitant]
  12. HYDROXYCHLOROQUINE [Concomitant]
     Dosage: 200 mg, UNK
  13. MUCINEX [Concomitant]
  14. OMEPRAZOLE [Concomitant]
     Dosage: 10 mg, UNK

REACTIONS (1)
  - Injection site bruising [Unknown]
